FAERS Safety Report 4283076-4 (Version None)
Quarter: 2004Q1

REPORT INFORMATION
  Report Type: 
  Country: None (occurrence: None)
  Receive Date: 20040129
  Receipt Date: 20040121
  Transmission Date: 20041129
  Serious: Yes (Death, Life-Threatening)
  Sender: FDA-Public Use
  Company Number: 2004-01-1277

PATIENT
  Age: 38 Year
  Sex: Male

DRUGS (8)
  1. LABETALOL HCL [Suspect]
     Indication: BLOOD PRESSURE INCREASED
     Dosage: 10 MG INTRAVENOUS, 1 DOSE
     Route: 042
  2. METOCLOPRAMIDE INJECTABLE [Suspect]
     Indication: NAUSEA
     Dosage: 10 MG INTRAVENOUS, 1 DOSE
     Route: 042
  3. METOCLOPRAMIDE INJECTABLE [Suspect]
     Indication: VOMITING
     Dosage: 10 MG INTRAVENOUS, 1 DOSE
     Route: 042
  4. LISINOPRIL [Suspect]
     Indication: HYPERTENSION
  5. MEPIVACAINE HCL [Concomitant]
  6. BUPIVACAINE [Concomitant]
  7. MIDAZOLAM HCL [Concomitant]
  8. PROPOFOL [Concomitant]

REACTIONS (15)
  - BLOOD PH DECREASED [None]
  - BLOOD PRESSURE IMMEASURABLE [None]
  - BLOOD PRESSURE INCREASED [None]
  - CIRCULATORY COLLAPSE [None]
  - COMA [None]
  - DILATATION ATRIAL [None]
  - DILATATION VENTRICULAR [None]
  - HYPOTENSION [None]
  - NAUSEA [None]
  - NODAL ARRHYTHMIA [None]
  - PCO2 DECREASED [None]
  - PO2 INCREASED [None]
  - PULSE ABSENT [None]
  - SINUS TACHYCARDIA [None]
  - VOMITING [None]
